FAERS Safety Report 8315609-2 (Version None)
Quarter: 2012Q2

REPORT INFORMATION
  Report Type: 
  Country: None (occurrence: None)
  Receive Date: 20120426
  Receipt Date: 20120412
  Transmission Date: 20120825
  Serious: Yes (Hospitalization)
  Sender: FDA-Public Use
  Company Number: DE-BAXTER-2012BH006466

PATIENT
  Sex: Male
  Weight: 84.5 kg

DRUGS (1)
  1. EXTRANEAL [Suspect]
     Indication: PERITONEAL DIALYSIS
     Route: 033
     Dates: start: 20120201, end: 20120218

REACTIONS (7)
  - AGITATION [None]
  - DYSPNOEA [None]
  - FLATULENCE [None]
  - NONINFECTIOUS PERITONITIS [None]
  - HYPOTENSION [None]
  - PERITONEAL EFFLUENT ABNORMAL [None]
  - CONDITION AGGRAVATED [None]
